FAERS Safety Report 6903792-2 (Version None)
Quarter: 2010Q3

REPORT INFORMATION
  Report Type: 
  Country: None (occurrence: None)
  Receive Date: 20100804
  Receipt Date: 20081210
  Transmission Date: 20110219
  Serious: No
  Sender: FDA-Public Use
  Company Number: US-PFIZER INC-2008154101

PATIENT
  Sex: Female

DRUGS (1)
  1. LYRICA [Suspect]
     Dosage: 75 MG, 2X/DAY

REACTIONS (13)
  - ABDOMINAL DISTENSION [None]
  - ANXIETY [None]
  - CHAPPED LIPS [None]
  - DEPRESSION [None]
  - DIZZINESS [None]
  - DRUG INEFFECTIVE [None]
  - DRY MOUTH [None]
  - FEELING ABNORMAL [None]
  - OEDEMA PERIPHERAL [None]
  - PAIN [None]
  - SLEEP DISORDER [None]
  - VISION BLURRED [None]
  - WEIGHT INCREASED [None]
